FAERS Safety Report 25747559 (Version 1)
Quarter: 2025Q3

REPORT INFORMATION
  Report Type: Spontaneous
  Country: US (occurrence: US)
  Receive Date: 20250901
  Receipt Date: 20250901
  Transmission Date: 20251021
  Serious: No
  Sender: SANOFI AVENTIS
  Company Number: US-SA-2025SA259542

PATIENT
  Sex: Female

DRUGS (6)
  1. DUPIXENT [Suspect]
     Active Substance: DUPILUMAB
     Indication: Dermatitis atopic
     Dosage: 300 MG, QOW
     Route: 058
  2. DESOXIMETASONE [Concomitant]
     Active Substance: DESOXIMETASONE
  3. EUCRISA [Concomitant]
     Active Substance: CRISABOROLE
  4. PIMECROLIMUS [Concomitant]
     Active Substance: PIMECROLIMUS
  5. PROGESTERONE [Concomitant]
     Active Substance: PROGESTERONE
  6. TACROLIMUS [Concomitant]
     Active Substance: TACROLIMUS

REACTIONS (2)
  - Skin discomfort [Unknown]
  - Rash [Unknown]
